FAERS Safety Report 6752598-6 (Version None)
Quarter: 2010Q2

REPORT INFORMATION
  Report Type: 
  Country: None (occurrence: None)
  Receive Date: 20100601
  Receipt Date: 20100601
  Transmission Date: 20101027
  Serious: Yes (Hospitalization)
  Sender: FDA-Public Use
  Company Number: None

PATIENT
  Age: 27 Year
  Sex: Female
  Weight: 56.6996 kg

DRUGS (1)
  1. BOTOX [Suspect]
     Indication: SKIN WRINKLING
     Dates: start: 20100525, end: 20100525

REACTIONS (16)
  - ANXIETY [None]
  - ASTHENIA [None]
  - DRY MOUTH [None]
  - DYSGEUSIA [None]
  - FATIGUE [None]
  - HEART RATE INCREASED [None]
  - HYPERSENSITIVITY [None]
  - HYPOAESTHESIA [None]
  - INJECTION SITE PAIN [None]
  - INJECTION SITE SWELLING [None]
  - NAUSEA [None]
  - OROPHARYNGEAL PAIN [None]
  - PARAESTHESIA [None]
  - SENSATION OF FOREIGN BODY [None]
  - UNEVALUABLE EVENT [None]
  - WRONG TECHNIQUE IN DRUG USAGE PROCESS [None]
